FAERS Safety Report 18122570 (Version 19)
Quarter: 2024Q2

REPORT INFORMATION
  Report Type: Report from Study
  Country: US (occurrence: US)
  Receive Date: 20200807
  Receipt Date: 20240627
  Transmission Date: 20240716
  Serious: Yes (Hospitalization, Other)
  Sender: FDA-Public Use
  Company Number: US-ACADIA PHARMACEUTICALS INC.-ACA-2020-PIM-002367

PATIENT
  Age: 82 Year
  Sex: Female

DRUGS (12)
  1. NUPLAZID [Suspect]
     Active Substance: PIMAVANSERIN TARTRATE
     Indication: Parkinson^s disease
     Dosage: 34 MILLIGRAM, QD
     Route: 048
     Dates: start: 20200717
  2. NUPLAZID [Suspect]
     Active Substance: PIMAVANSERIN TARTRATE
     Dosage: 34 MILLIGRAM
     Route: 048
  3. NUPLAZID [Suspect]
     Active Substance: PIMAVANSERIN TARTRATE
     Dosage: 34 MILLIGRAM, QD
     Route: 048
  4. ASPIRIN [Concomitant]
     Active Substance: ASPIRIN
     Dosage: 81 MILLIGRAM
  5. HYDROCODONE BITARTRATE AND ACETAMINOPHEN [Concomitant]
     Active Substance: ACETAMINOPHEN\HYDROCODONE BITARTRATE
     Dosage: 7.5-325
     Route: 065
  6. VERAPAMIL [Concomitant]
     Active Substance: VERAPAMIL HYDROCHLORIDE
  7. TORSEMIDE [Concomitant]
     Active Substance: TORSEMIDE
  8. SINEMET [Concomitant]
     Active Substance: CARBIDOPA\LEVODOPA
  9. CITALOPRAM [Concomitant]
     Active Substance: CITALOPRAM\CITALOPRAM HYDROBROMIDE
  10. SEROQUEL [Concomitant]
     Active Substance: QUETIAPINE FUMARATE
  11. AMANTADINE [Concomitant]
     Active Substance: AMANTADINE
  12. VERTIN [BETAHISTINE HYDROCHLORIDE] [Concomitant]

REACTIONS (29)
  - Gastric ulcer [Unknown]
  - Large intestinal obstruction [Unknown]
  - COVID-19 [Not Recovered/Not Resolved]
  - Parkinson^s disease [Not Recovered/Not Resolved]
  - Condition aggravated [Not Recovered/Not Resolved]
  - Product dose omission issue [Not Recovered/Not Resolved]
  - Product dose omission issue [Unknown]
  - Nonspecific reaction [Unknown]
  - Nonspecific reaction [Unknown]
  - Mobility decreased [Not Recovered/Not Resolved]
  - Product dose omission issue [Unknown]
  - Nonspecific reaction [Unknown]
  - COVID-19 [Unknown]
  - COVID-19 [Recovering/Resolving]
  - Dizziness [Not Recovered/Not Resolved]
  - Product dose omission issue [Not Recovered/Not Resolved]
  - Nonspecific reaction [Not Recovered/Not Resolved]
  - Confusional state [Unknown]
  - Hallucination [Not Recovered/Not Resolved]
  - Hallucination [Recovering/Resolving]
  - Constipation [Not Recovered/Not Resolved]
  - Fall [Unknown]
  - Peripheral swelling [Not Recovered/Not Resolved]
  - Hallucination [Not Recovered/Not Resolved]
  - Hallucination [Not Recovered/Not Resolved]
  - Constipation [Not Recovered/Not Resolved]
  - Hallucination [Not Recovered/Not Resolved]
  - Hallucination [Unknown]
  - Hallucination [Not Recovered/Not Resolved]

NARRATIVE: CASE EVENT DATE: 20211001
